FAERS Safety Report 22281792 (Version 1)
Quarter: 2023Q2

REPORT INFORMATION
  Report Type: Spontaneous
  Country: IT (occurrence: IT)
  Receive Date: 20230504
  Receipt Date: 20230504
  Transmission Date: 20230722
  Serious: Yes (Other)
  Sender: FDA-Public Use
  Company Number: IT-CELLTRION INC.-2023IT009274

PATIENT

DRUGS (3)
  1. RITUXIMAB [Suspect]
     Active Substance: RITUXIMAB
     Indication: Immunotactoid glomerulonephritis
     Dosage: EVERY 4 WEEKS
  2. BENDAMUSTINE [Concomitant]
     Active Substance: BENDAMUSTINE
     Indication: Immunotactoid glomerulonephritis
  3. CHLORAMBUCIL [Concomitant]
     Active Substance: CHLORAMBUCIL
     Indication: Immunotactoid glomerulonephritis
     Dosage: 0.2 MG/KG

REACTIONS (2)
  - COVID-19 [Unknown]
  - Intentional product use issue [Unknown]
